FAERS Safety Report 8444061-1 (Version None)
Quarter: 2012Q2

REPORT INFORMATION
  Report Type: 
  Country: None (occurrence: None)
  Receive Date: 20120618
  Receipt Date: 20120613
  Transmission Date: 20120825
  Serious: Yes (Death)
  Sender: FDA-Public Use
  Company Number: PHHY2012JP040123

PATIENT
  Sex: Male
  Weight: 46 kg

DRUGS (8)
  1. OLMESARTAN MEDOXOMIL [Concomitant]
     Route: 048
  2. DIGOXIN [Concomitant]
     Route: 048
  3. SLOW-K [Concomitant]
     Route: 048
  4. LISPINE [Concomitant]
     Route: 048
  5. SPIRONOLACTONE [Concomitant]
     Route: 048
  6. EXELON [Suspect]
     Indication: DEMENTIA ALZHEIMER'S TYPE
     Dosage: 4.5 MG, DAILY
     Route: 062
     Dates: start: 20120223
  7. FUROSEMIDE [Concomitant]
     Route: 048
  8. KALLIANT [Concomitant]
     Route: 048

REACTIONS (2)
  - ACCIDENT [None]
  - MALAISE [None]
